FAERS Safety Report 15921868 (Version 2)
Quarter: 2019Q1

REPORT INFORMATION
  Report Type: Spontaneous
  Country: US (occurrence: US)
  Receive Date: 20190205
  Receipt Date: 20190219
  Transmission Date: 20190417
  Serious: No
  Sender: FDA-Public Use
  Company Number: US-ALLERGAN-1803741US

PATIENT
  Age: 27 Year
  Sex: Male

DRUGS (4)
  1. ALEVE [Concomitant]
     Active Substance: NAPROXEN SODIUM
     Indication: PRODUCT USED FOR UNKNOWN INDICATION
     Dosage: 2 DF, QPM
     Route: 065
  2. FLEXERIL [Concomitant]
     Active Substance: CYCLOBENZAPRINE HYDROCHLORIDE
     Indication: PRODUCT USED FOR UNKNOWN INDICATION
     Dosage: 10 MG, QPM
     Route: 065
  3. BOTOX [Suspect]
     Active Substance: ONABOTULINUMTOXINA
     Indication: FEMORAL NERVE INJURY
     Dosage: 200 UNITS, SINGLE
     Route: 030
     Dates: start: 20180117, end: 20180117
  4. GABAPENTIN. [Concomitant]
     Active Substance: GABAPENTIN
     Indication: PRODUCT USED FOR UNKNOWN INDICATION
     Dosage: 300 MG, QPM
     Route: 065

REACTIONS (2)
  - Burning sensation [Recovered/Resolved]
  - Off label use [Unknown]

NARRATIVE: CASE EVENT DATE: 20180118
